FAERS Safety Report 17694933 (Version 1)
Quarter: 2020Q2

REPORT INFORMATION
  Report Type: Report from Study
  Country: US (occurrence: US)
  Receive Date: 20200422
  Receipt Date: 20200422
  Transmission Date: 20200714
  Serious: Yes (Other)
  Sender: FDA-Public Use
  Company Number: US-BAUSCH-BL-2020-011666

PATIENT
  Age: 65 Year
  Sex: Female

DRUGS (5)
  1. WELLBUTRIN XL [Interacting]
     Active Substance: BUPROPION HYDROCHLORIDE
     Dosage: RESTARTED APPROXIMATELY 1 WEEK PRIOR TO INITIAL REPORT
     Route: 048
     Dates: start: 202004, end: 20200414
  2. EXCEDRIN MIGRAINE [Concomitant]
     Active Substance: ACETAMINOPHEN\ASPIRIN\CAFFEINE
     Indication: PRODUCT USED FOR UNKNOWN INDICATION
     Dosage: AS NEEDED
     Route: 048
  3. WELLBUTRIN XL [Suspect]
     Active Substance: BUPROPION HYDROCHLORIDE
     Indication: MAJOR DEPRESSION
     Dosage: APPROXIMATELY 15 YEARS PRIOR TO INITIAL REPORT
     Route: 048
     Dates: end: 2019
  4. METHYLPHENIDATE. [Concomitant]
     Active Substance: METHYLPHENIDATE
     Indication: PRODUCT USED FOR UNKNOWN INDICATION
     Route: 048
  5. ADVIL [Concomitant]
     Active Substance: IBUPROFEN
     Indication: PRODUCT USED FOR UNKNOWN INDICATION
     Dosage: AS NEEDED
     Route: 048

REACTIONS (8)
  - Stress fracture [Unknown]
  - Hip fracture [Unknown]
  - Constipation [Unknown]
  - Autoimmune thyroiditis [Unknown]
  - Drug interaction [Unknown]
  - Therapy interrupted [Unknown]
  - Bone density decreased [Unknown]
  - Insurance issue [Unknown]

NARRATIVE: CASE EVENT DATE: 20200414
